FAERS Safety Report 5156466-5 (Version None)
Quarter: 2006Q4

REPORT INFORMATION
  Report Type: 
  Country: None (occurrence: None)
  Receive Date: 20061113
  Receipt Date: 20061030
  Transmission Date: 20070319
  Serious: Yes (Other)
  Sender: FDA-Public Use
  Company Number: S06-USA-02937-01

PATIENT
  Age: 82 Year
  Sex: Male

DRUGS (17)
  1. TIAZAC [Suspect]
     Indication: CORONARY ARTERY DISEASE
     Dosage: 120 MG TID PO
     Route: 048
     Dates: start: 20030101, end: 20060918
  2. TIAZAC [Suspect]
     Indication: HYPERTENSION
     Dosage: 120 MG TID PO
     Route: 048
     Dates: start: 20030101, end: 20060918
  3. TIAZAC [Suspect]
     Indication: CORONARY ARTERY DISEASE
     Dosage: 120 MG BID PO
     Route: 048
     Dates: start: 20060919, end: 20060928
  4. TIAZAC [Suspect]
     Indication: HYPERTENSION
     Dosage: 120 MG BID PO
     Route: 048
     Dates: start: 20060919, end: 20060928
  5. TIAZAC [Suspect]
     Indication: CORONARY ARTERY DISEASE
     Dosage: 120 MG BID PO
     Route: 048
     Dates: start: 20060101
  6. TIAZAC [Suspect]
     Indication: HYPERTENSION
     Dosage: 120 MG BID PO
     Route: 048
     Dates: start: 20060101
  7. RAMIPRIL [Suspect]
     Indication: HYPERTENSION
     Dosage: 10 MG QD
     Dates: start: 20030101
  8. HYDROCHLOROTHIAZIDE [Suspect]
     Indication: HYPERTENSION
     Dosage: 25 MG QD
     Dates: start: 20030101, end: 20060726
  9. HYDROCHLOROTHIAZIDE [Suspect]
     Indication: HYPERTENSION
     Dosage: 12.5 MG QD
     Dates: start: 20060727, end: 20060819
  10. HYDROCHLOROTHIAZIDE [Suspect]
     Indication: HYPERTENSION
     Dosage: 25 MG QAM
     Dates: start: 20060820, end: 20060101
  11. HYDROCHLOROTHIAZIDE [Suspect]
     Indication: HYPERTENSION
     Dosage: 12.5 MG QHS
     Dates: start: 20060820, end: 20060101
  12. HYDROCHLOROTHIAZIDE [Suspect]
     Indication: HYPERTENSION
     Dosage: 25 MG BID
     Dates: start: 20060101, end: 20060929
  13. VALIUM [Concomitant]
  14. PERCOCET [Concomitant]
  15. ASPIRIN [Concomitant]
  16. BACLOFEN [Concomitant]
  17. LASIX [Concomitant]

REACTIONS (17)
  - ATELECTASIS [None]
  - BLOOD CREATININE INCREASED [None]
  - BLOOD UREA INCREASED [None]
  - CREPITATIONS [None]
  - DEHYDRATION [None]
  - DRUG INTERACTION [None]
  - FATIGUE [None]
  - GLOMERULAR FILTRATION RATE DECREASED [None]
  - HYPERTENSION [None]
  - MICROANGIOPATHY [None]
  - OEDEMA PERIPHERAL [None]
  - PITTING OEDEMA [None]
  - PULMONARY CONGESTION [None]
  - RALES [None]
  - RENAL DISORDER [None]
  - SYNOVIAL CYST [None]
  - WEIGHT INCREASED [None]
